FAERS Safety Report 9672287 (Version 3)
Quarter: 2014Q1

REPORT INFORMATION
  Report Type: Report from Study
  Country: US (occurrence: US)
  Receive Date: 20131106
  Receipt Date: 20140306
  Transmission Date: 20141002
  Serious: Yes (Hospitalization)
  Sender: FDA-Public Use
  Company Number: US-ABBVIE-13P-163-1057272-00

PATIENT
  Age: 31 Year
  Sex: Female

DRUGS (7)
  1. HUMIRA [Suspect]
     Indication: COLITIS ULCERATIVE
     Route: 058
  2. HUMIRA [Suspect]
     Route: 058
     Dates: start: 201211, end: 20130624
  3. HUMIRA [Suspect]
     Dosage: INCREASED WHEN FLARED
     Route: 058
  4. HYDROCORTISONE ENEMA [Concomitant]
     Indication: PRODUCT USED FOR UNKNOWN INDICATION
     Dosage: AT NIGHT; CURRENTLY USING DAILY
  5. CORTIFOAM [Concomitant]
     Indication: PRODUCT USED FOR UNKNOWN INDICATION
     Dosage: IN THE MORNING; CURRENTLY USING DAILY
  6. PRENATAL VITAMINS [Concomitant]
     Indication: PRODUCT USED FOR UNKNOWN INDICATION
  7. PREDNISONE [Concomitant]

REACTIONS (6)
  - Premature rupture of membranes [Unknown]
  - Colitis ulcerative [Recovering/Resolving]
  - Injection site haemorrhage [Recovered/Resolved]
  - Wrong technique in drug usage process [Recovered/Resolved]
  - Colitis ulcerative [Not Recovered/Not Resolved]
  - Colitis ulcerative [Unknown]
